FAERS Safety Report 8077063-8 (Version None)
Quarter: 2012Q1

REPORT INFORMATION
  Report Type: 
  Country: None (occurrence: None)
  Receive Date: 20120127
  Receipt Date: 20120119
  Transmission Date: 20120608
  Serious: Yes (Other)
  Sender: FDA-Public Use
  Company Number: PHHY2011BR112593

PATIENT
  Age: 50 Year
  Sex: Male

DRUGS (8)
  1. CARBAMAZEPINE [Suspect]
     Indication: CONVULSION
     Dosage: UNK UKN, UNK
     Dates: start: 20090501
  2. ALCOHOL [Interacting]
     Dosage: UNK UKN, UNK
  3. PREDNISOLONE [Concomitant]
     Dosage: UNK UKN, UNK
  4. ALBENDAZOLE [Concomitant]
     Dosage: UNK UKN, UNK
  5. OXCARBAZEPINE [Interacting]
     Dosage: 600 MG, DAILY
     Dates: start: 20091201
  6. OXCARBAZEPINE [Interacting]
     Dosage: 900 MG, DAILY
  7. TRILEPTAL [Suspect]
     Dosage: UNK UKN, UNK
     Dates: start: 20090101
  8. OXCARBAZEPINE [Interacting]
     Dosage: 600 MG, UNK

REACTIONS (29)
  - URINARY TRACT DISORDER [None]
  - URINARY RETENTION [None]
  - FOOD POISONING [None]
  - CONVULSION [None]
  - FATIGUE [None]
  - HEADACHE [None]
  - PANIC DISORDER [None]
  - GASTROINTESTINAL DISORDER [None]
  - ANTICONVULSANT DRUG LEVEL DECREASED [None]
  - OEDEMA [None]
  - IRRITABLE BOWEL SYNDROME [None]
  - ALCOHOL INTERACTION [None]
  - LOSS OF CONSCIOUSNESS [None]
  - GASTROENTERITIS [None]
  - IDIOSYNCRATIC DRUG REACTION [None]
  - NEUROCYSTICERCOSIS [None]
  - CEREBRAL CALCIFICATION [None]
  - SLEEP DISORDER [None]
  - ANXIETY [None]
  - DEPRESSION [None]
  - DIZZINESS [None]
  - DRUG INTOLERANCE [None]
  - HELMINTHIC INFECTION [None]
  - MALAISE [None]
  - BLOOD SODIUM DECREASED [None]
  - POLLAKIURIA [None]
  - CONDITION AGGRAVATED [None]
  - DEPERSONALISATION [None]
  - DIARRHOEA [None]
